FAERS Safety Report 11347044 (Version 3)
Quarter: 2015Q3

REPORT INFORMATION
  Report Type: Spontaneous
  Country: US (occurrence: US)
  Receive Date: 20150806
  Receipt Date: 20150901
  Transmission Date: 20151125
  Serious: No
  Sender: FDA-Public Use
  Company Number: US-PFIZER INC-2015251266

PATIENT
  Age: 50 Year
  Sex: Male

DRUGS (9)
  1. NEURONTIN [Suspect]
     Active Substance: GABAPENTIN
     Indication: HEADACHE
     Dosage: 900 MG, 3X/DAY
  2. GABAPENTIN. [Suspect]
     Active Substance: GABAPENTIN
     Dosage: 1 PILL DAILY
  3. GABAPENTIN. [Suspect]
     Active Substance: GABAPENTIN
     Indication: NEURALGIA
     Dosage: POSSIBLY 900 MG, 4X/DAY, POSSIBLY A TOTAL OF 3600MG PER DAY
     Dates: start: 201201
  4. CELEBREX [Concomitant]
     Active Substance: CELECOXIB
     Dosage: 200 MG, 1X/DAY
  5. PRISTIQ EXTENDED RELEASE [Concomitant]
     Active Substance: DESVENLAFAXINE SUCCINATE
  6. GABAPENTIN. [Suspect]
     Active Substance: GABAPENTIN
     Indication: HEADACHE
     Dosage: 900 MG, 3X/DAY
  7. FLEXERIL [Concomitant]
     Active Substance: CYCLOBENZAPRINE HYDROCHLORIDE
  8. NEURONTIN [Suspect]
     Active Substance: GABAPENTIN
     Dosage: 1 PILL DAILY
  9. NEURONTIN [Suspect]
     Active Substance: GABAPENTIN
     Indication: NEURALGIA
     Dosage: POSSIBLY 900 MG, 4X/DAY, POSSIBLY A TOTAL OF 3600MG PER DAY
     Dates: start: 2010, end: 201201

REACTIONS (13)
  - Sedation [Recovered/Resolved]
  - Drug withdrawal syndrome [Unknown]
  - Decreased appetite [Unknown]
  - Speech disorder [Recovered/Resolved]
  - Malaise [Unknown]
  - Dry mouth [Recovered/Resolved]
  - Hyperhidrosis [Unknown]
  - Formication [Unknown]
  - Thirst [Unknown]
  - Emotional disorder [Unknown]
  - Impaired work ability [Unknown]
  - Decreased interest [Unknown]
  - Drug ineffective for unapproved indication [Unknown]

NARRATIVE: CASE EVENT DATE: 2010
